FAERS Safety Report 18132443 (Version 3)
Quarter: 2020Q4

REPORT INFORMATION
  Report Type: Other
  Country: US (occurrence: US)
  Receive Date: 20200811
  Receipt Date: 20201112
  Transmission Date: 20210113
  Serious: Yes (Death)
  Sender: FDA-Public Use
  Company Number: US-ROCHE-2657568

PATIENT
  Sex: Female

DRUGS (18)
  1. TYLENOL [Concomitant]
     Active Substance: ACETAMINOPHEN
     Indication: PAIN
     Dosage: 300-30 MG TABLET?TAKE 1 TABLET BY MOUTH 6 HOURS AS NEEDED FOR PAIN
     Route: 048
  2. FLEXERIL [Concomitant]
     Active Substance: CYCLOBENZAPRINE HYDROCHLORIDE
     Indication: MUSCLE SPASMS
     Dosage: TAKE 1 TABLET (5 MG ) 3 TIMES A DAY AS NEEDED FOR MUSCLE SPASMS
     Route: 048
  3. RITUXAN [Suspect]
     Active Substance: RITUXIMAB
     Indication: RHEUMATOID ARTHRITIS
     Dosage: INFUSE 1000 MG INTRAVENOUSLY ON DAY(S) 1 AND DAY 15 EVERY 6 MONTHS?ONGOING: NO
     Route: 042
  4. RITUXAN [Suspect]
     Active Substance: RITUXIMAB
     Indication: INTERSTITIAL LUNG DISEASE
  5. LIPITOR [Concomitant]
     Active Substance: ATORVASTATIN CALCIUM
     Dosage: TAKE 1 TABLET DAILY
     Route: 048
  6. ACETYLCYSTEINE. [Concomitant]
     Active Substance: ACETYLCYSTEINE
     Dosage: TAKE 600 MG BY MOUTH DAILY SUPPLEMENT
     Route: 048
  7. TEGRETOL XR [Concomitant]
     Active Substance: CARBAMAZEPINE
     Dosage: TAKE 1 TABLET BY MOUTH 2 TIMES A DAILY?400 MG TABLET EXTENDED RELEASE 12 HR
     Route: 048
  8. TESSALON [Concomitant]
     Active Substance: BENZONATATE
     Indication: COUGH
     Dosage: TAKE 200 MG 3 TIMES A DAY AS NEEDED FOR COUGH
     Route: 048
  9. PROLIA [Concomitant]
     Active Substance: DENOSUMAB
     Dosage: INJECT 1 ML (60 MG TOTAL) UNDER THE SKIN EVERY 6 MONTH
     Route: 058
  10. PLAQUENIL [Concomitant]
     Active Substance: HYDROXYCHLOROQUINE SULFATE
     Dosage: TAKE 1 TABLET (200 MG TOTAL) BY MOUTH DAILY
     Route: 048
  11. DELTASONE [Concomitant]
     Active Substance: PREDNISONE
     Dosage: THEN DECREASES BY 1 MG EVERY 2 WEEKS UNTIL OFF
     Route: 048
  12. RITUXAN [Suspect]
     Active Substance: RITUXIMAB
     Indication: RHEUMATOID ARTHRITIS
  13. OSCAL [Concomitant]
     Active Substance: CALCIUM CARBONATE
     Dosage: 600 MG(1500 MG) TABLET
     Route: 048
  14. PRILOSEC [Concomitant]
     Active Substance: OMEPRAZOLE MAGNESIUM
     Route: 048
  15. ZITHROMAX [Concomitant]
     Active Substance: AZITHROMYCIN DIHYDRATE
     Dosage: TAKE 2 TABLETS THE FIRST DAY, THEN 1 TABLET DAILY FOR 4 DAYS
     Route: 048
  16. LEXAPRO [Concomitant]
     Active Substance: ESCITALOPRAM OXALATE
     Dosage: TAKE 1 TABLET DAILY
     Route: 048
  17. ZOMIG [Concomitant]
     Active Substance: ZOLMITRIPTAN
     Dosage: TAKE 5 MG BY MOUTH AS NEEDED
     Route: 048
  18. VITAMIN D3 [Concomitant]
     Active Substance: CHOLECALCIFEROL
     Dosage: 1000 UNIT CAPSULE
     Route: 048

REACTIONS (1)
  - Death [Fatal]
